FAERS Safety Report 5995016-8 (Version None)
Quarter: 2008Q4

REPORT INFORMATION
  Report Type: 
  Country: None (occurrence: None)
  Receive Date: 20081212
  Receipt Date: 20081020
  Transmission Date: 20090506
  Serious: No
  Sender: FDA-Public Use
  Company Number: US-ABBOTT-08P-163-0477434-00

PATIENT
  Sex: Female
  Weight: 108.96 kg

DRUGS (4)
  1. HUMIRA [Suspect]
     Indication: COLITIS ULCERATIVE
     Dates: start: 20080716
  2. PREDNISONE TAB [Suspect]
     Indication: DRUG USE FOR UNKNOWN INDICATION
     Dates: end: 20080909
  3. LEVOTHYROXINE SODIUM [Concomitant]
     Indication: HYPOTHYROIDISM
     Route: 048
  4. BALSALAZIDE DISODIUM [Concomitant]
     Indication: DRUG USE FOR UNKNOWN INDICATION

REACTIONS (8)
  - ARTHRALGIA [None]
  - FATIGUE [None]
  - GAIT DISTURBANCE [None]
  - JOINT SWELLING [None]
  - LYMPHOEDEMA [None]
  - OEDEMA PERIPHERAL [None]
  - VENOUS INSUFFICIENCY [None]
  - WEIGHT INCREASED [None]
